FAERS Safety Report 22004810 (Version 1)
Quarter: 2023Q1

REPORT INFORMATION
  Report Type: Spontaneous
  Country: JP (occurrence: JP)
  Receive Date: 20230217
  Receipt Date: 20230217
  Transmission Date: 20230418
  Serious: Yes (Hospitalization)
  Sender: FDA-Public Use
  Company Number: JP-GLAXOSMITHKLINE-JP2022JPN193178

PATIENT

DRUGS (4)
  1. DAPRODUSTAT [Suspect]
     Active Substance: DAPRODUSTAT
     Dosage: 4 MG, 1D
  2. DAPRODUSTAT [Suspect]
     Active Substance: DAPRODUSTAT
     Dosage: 6 MG, QD, EVERY MORNING
     Route: 048
  3. DARBEPOETIN ALFA [Concomitant]
     Active Substance: DARBEPOETIN ALFA
     Dosage: 80 ?G PER WEEK
  4. DARBEPOETIN ALFA [Concomitant]
     Active Substance: DARBEPOETIN ALFA
     Dosage: 100 ?G PER WEEK

REACTIONS (1)
  - Hospitalisation [Unknown]
